FAERS Safety Report 14669499 (Version 1)
Quarter: 2018Q1

REPORT INFORMATION
  Report Type: Report from Study
  Country: PL (occurrence: PL)
  Receive Date: 20180322
  Receipt Date: 20180322
  Transmission Date: 20180509
  Serious: Yes (Other)
  Sender: FDA-Public Use
  Company Number: PL-TEVA-2018-PL-873713

PATIENT
  Sex: Female

DRUGS (1)
  1. COPAXONE [Suspect]
     Active Substance: GLATIRAMER ACETATE
     Indication: MULTIPLE SCLEROSIS
     Dosage: COPAXONE 40 MG/ML
     Dates: start: 20160727, end: 20180209

REACTIONS (4)
  - Pain [Unknown]
  - Lipoatrophy [Unknown]
  - Multiple sclerosis [Unknown]
  - Adhesion [Unknown]

NARRATIVE: CASE EVENT DATE: 2018
